FAERS Safety Report 5092859-2 (Version None)
Quarter: 2006Q3

REPORT INFORMATION
  Report Type: 
  Country: None (occurrence: None)
  Receive Date: 20060727
  Receipt Date: 20060620
  Transmission Date: 20061208
  Serious: Yes (Other)
  Sender: FDA-Public Use
  Company Number: 2006078967

PATIENT
  Age: 70 Year
  Sex: Female
  Weight: 72.5755 kg

DRUGS (8)
  1. LYRICA [Suspect]
     Indication: PAIN
     Dosage: 150 MG (75 MG,2 IN 1 D)
     Dates: start: 20060601, end: 20060601
  2. MORPHINE [Concomitant]
  3. CYMBALTA [Concomitant]
  4. ULTRAM [Concomitant]
  5. IBUPROFEN [Concomitant]
  6. TIMOPTIC [Concomitant]
  7. EVISTA [Concomitant]
  8. ACETAMINOPHEN [Concomitant]

REACTIONS (4)
  - DIPLOPIA [None]
  - DRY MOUTH [None]
  - DYSPNOEA [None]
  - OEDEMA PERIPHERAL [None]
